FAERS Safety Report 8171775-3 (Version None)
Quarter: 2012Q1

REPORT INFORMATION
  Report Type: 
  Country: None (occurrence: None)
  Receive Date: 20120228
  Receipt Date: 20120222
  Transmission Date: 20120608
  Serious: Yes (Hospitalization)
  Sender: FDA-Public Use
  Company Number: US-GLAXOSMITHKLINE-A0967010A

PATIENT
  Age: 36 Year
  Sex: Female

DRUGS (5)
  1. OXYCONTIN [Concomitant]
  2. OXYCODONE HCL [Concomitant]
  3. PROTONIX [Concomitant]
  4. LASIX [Concomitant]
  5. VOTRIENT [Suspect]
     Indication: GASTROINTESTINAL STROMAL TUMOUR
     Dosage: 400MG PER DAY
     Route: 048
     Dates: start: 20111124, end: 20111219

REACTIONS (7)
  - INTESTINAL PERFORATION [None]
  - OFF LABEL USE [None]
  - THERAPEUTIC RESPONSE UNEXPECTED [None]
  - ENTERITIS INFECTIOUS [None]
  - DIARRHOEA [None]
  - ABSCESS INTESTINAL [None]
  - OEDEMA PERIPHERAL [None]
